FAERS Safety Report 8201537-X (Version None)
Quarter: 2012Q1

REPORT INFORMATION
  Report Type: 
  Country: None (occurrence: None)
  Receive Date: 20120307
  Receipt Date: 20110209
  Transmission Date: 20120608
  Serious: Yes (Hospitalization)
  Sender: FDA-Public Use
  Company Number: ESP-CLT-2012001

PATIENT
  Age: 3 Year
  Sex: Female

DRUGS (3)
  1. ORAL POWDER [Suspect]
  2. CYSTADANE [Suspect]
     Indication: METHYLENETETRAHYDROFOLATE REDUCTASE DEFICIENCY
     Dosage: 1 000 MG EVERY DAY
     Route: 048
     Dates: start: 20080721, end: 20090114
  3. BETAINE ANHYDROUS [Suspect]
     Dosage: 4 800 MG EVERY DAY
     Route: 048
     Dates: start: 20090115

REACTIONS (5)
  - BLOOD HOMOCYSTEINE INCREASED [None]
  - GRAND MAL CONVULSION [None]
  - PARTIAL SEIZURES [None]
  - VITAMIN B12 INCREASED [None]
  - ATAXIA [None]
